FAERS Safety Report 5746397-1 (Version None)
Quarter: 2008Q2

REPORT INFORMATION
  Report Type: 
  Country: None (occurrence: None)
  Receive Date: 20080520
  Receipt Date: 20080520
  Transmission Date: 20081010
  Serious: Yes (Life-Threatening, Hospitalization)
  Sender: FDA-Public Use
  Company Number: None

PATIENT
  Age: 40 Year
  Sex: Female
  Weight: 72.5755 kg

DRUGS (5)
  1. CHANTIX [Suspect]
     Indication: SMOKING CESSATION THERAPY
     Dosage: .5MG  2 TIMES A DAY  PO
     Route: 048
     Dates: start: 20061201, end: 20061206
  2. CHANTIX [Suspect]
     Indication: SMOKING CESSATION THERAPY
     Dosage: 1MG  2 TIMES A DAY  PO
     Route: 048
     Dates: start: 20061207, end: 20061216
  3. HEPARIN [Concomitant]
  4. LOVENOX [Concomitant]
  5. COUMADIN [Concomitant]

REACTIONS (6)
  - CHEST PAIN [None]
  - FEELING ABNORMAL [None]
  - INFLUENZA LIKE ILLNESS [None]
  - MUSCULOSKELETAL PAIN [None]
  - NAUSEA [None]
  - PULMONARY EMBOLISM [None]
